FAERS Safety Report 7999009-0 (Version None)
Quarter: 2011Q4

REPORT INFORMATION
  Report Type: 
  Country: None (occurrence: None)
  Receive Date: 20111221
  Receipt Date: 20111212
  Transmission Date: 20120403
  Serious: Yes (Other)
  Sender: FDA-Public Use
  Company Number: CA-JNJFOC-20111207010

PATIENT
  Sex: Female
  Weight: 111 kg

DRUGS (1)
  1. REMICADE [Suspect]
     Indication: RHEUMATOID ARTHRITIS
     Dosage: THE AE EVENT FORM LISTS THE THERAPY START DATE AS: ^1907?^.
     Route: 042

REACTIONS (1)
  - LUNG NEOPLASM MALIGNANT [None]
